FAERS Safety Report 15900318 (Version 1)
Quarter: 2019Q1

REPORT INFORMATION
  Report Type: Spontaneous
  Country: US (occurrence: US)
  Receive Date: 20190131
  Receipt Date: 20190131
  Transmission Date: 20190417
  Serious: Yes (Disabling)
  Sender: FDA-Public Use
  Company Number: None

PATIENT
  Age: 8 Month
  Sex: Female
  Weight: 7.83 kg

DRUGS (1)
  1. EQUATE IBUPROFEN CHILDRENS [Suspect]
     Active Substance: IBUPROFEN
     Indication: PYREXIA
     Route: 048
     Dates: start: 20190114, end: 20190124

REACTIONS (6)
  - Infantile vomiting [None]
  - Pyrexia [None]
  - Diarrhoea [None]
  - Mucous stools [None]
  - Pain [None]
  - Haematochezia [None]

NARRATIVE: CASE EVENT DATE: 20190121
